FAERS Safety Report 19817232 (Version 1)
Quarter: 2021Q3

REPORT INFORMATION
  Report Type: Spontaneous
  Country: BR (occurrence: BR)
  Receive Date: 20210910
  Receipt Date: 20210910
  Transmission Date: 20211014
  Serious: Yes (Other)
  Sender: FDA-Public Use
  Company Number: BR-ROCHE-2905277

PATIENT
  Age: 54 Year
  Sex: Male
  Weight: 79.8 kg

DRUGS (2)
  1. METHYLPREDNISOLONE. [Concomitant]
     Active Substance: METHYLPREDNISOLONE
     Route: 042
  2. ACTEMRA [Suspect]
     Active Substance: TOCILIZUMAB
     Indication: COVID-19
     Dosage: SINGLE DOSE ? 8 MG/KG/DOSE
     Route: 042
     Dates: start: 20210517, end: 20210517

REACTIONS (5)
  - Nausea [Recovering/Resolving]
  - Pancreatitis acute [Unknown]
  - Pancreatic enzymes increased [Recovering/Resolving]
  - Abdominal distension [Recovering/Resolving]
  - Off label use [Unknown]

NARRATIVE: CASE EVENT DATE: 20210517
